FAERS Safety Report 6243469-2 (Version None)
Quarter: 2009Q2

REPORT INFORMATION
  Report Type: 
  Country: None (occurrence: None)
  Receive Date: 20090624
  Receipt Date: 20090617
  Transmission Date: 20091009
  Serious: Yes (Hospitalization)
  Sender: FDA-Public Use
  Company Number: US-AVENTIS-200914156US

PATIENT
  Sex: Male
  Weight: 77.1 kg

DRUGS (3)
  1. LANTUS [Suspect]
     Route: 058
     Dates: start: 20090317, end: 20090328
  2. ZOCOR [Concomitant]
     Dates: start: 20090315
  3. GLIPIZIDE [Concomitant]
     Dosage: DOSE: UNK
     Dates: start: 20070302, end: 20090315

REACTIONS (8)
  - ANXIETY [None]
  - DYSPNOEA [None]
  - GALLBLADDER DISORDER [None]
  - HYPERSENSITIVITY [None]
  - NEPHROLITHIASIS [None]
  - OEDEMA PERIPHERAL [None]
  - PARAESTHESIA [None]
  - SWELLING FACE [None]
